FAERS Safety Report 7022757-6 (Version None)
Quarter: 2010Q3

REPORT INFORMATION
  Report Type: 
  Country: None (occurrence: None)
  Receive Date: 20100930
  Receipt Date: 20100928
  Transmission Date: 20110219
  Serious: Yes (Hospitalization)
  Sender: FDA-Public Use
  Company Number: A0883827A

PATIENT
  Age: 70 Year
  Sex: Female

DRUGS (11)
  1. DIGOXIN [Suspect]
     Route: 048
  2. WARFARIN SODIUM [Suspect]
     Indication: CEREBROVASCULAR ACCIDENT PROPHYLAXIS
     Dosage: 4MG PER DAY
     Route: 048
     Dates: start: 20090929
  3. APIXABAN [Suspect]
     Indication: THROMBOSIS PROPHYLAXIS
     Dosage: 5MG PER DAY
     Route: 048
     Dates: start: 20090929
  4. LASIX [Concomitant]
  5. FLECAINIDE ACETATE [Concomitant]
  6. POTASSIUM [Concomitant]
  7. DILTIAZEM [Concomitant]
  8. NAMENDA [Concomitant]
  9. TAMOXIFEN CITRATE [Concomitant]
  10. SPIRIVA [Concomitant]
  11. SPIRONOLACTONE [Concomitant]

REACTIONS (4)
  - ASTHENIA [None]
  - NAUSEA [None]
  - THERAPEUTIC AGENT TOXICITY [None]
  - URINARY TRACT INFECTION [None]
